FAERS Safety Report 17774947 (Version 1)
Quarter: 2020Q2

REPORT INFORMATION
  Report Type: Spontaneous
  Country: US (occurrence: US)
  Receive Date: 20200512
  Receipt Date: 20200512
  Transmission Date: 20200714
  Serious: Yes (Hospitalization, Other)
  Sender: FDA-Public Use
  Company Number: None

PATIENT
  Age: 73 Year
  Sex: Female
  Weight: 45 kg

DRUGS (1)
  1. MINOXIDIL WITH BIOTIN [Suspect]
     Active Substance: BIOTIN\MINOXIDIL
     Route: 048

REACTIONS (2)
  - Tachycardia [None]
  - Oedema [None]

NARRATIVE: CASE EVENT DATE: 20200508
